FAERS Safety Report 15737771 (Version 2)
Quarter: 2018Q4

REPORT INFORMATION
  Report Type: Spontaneous
  Country: BR (occurrence: BR)
  Receive Date: 20181219
  Receipt Date: 20181219
  Transmission Date: 20190205
  Serious: Yes (Other)
  Sender: FDA-Public Use
  Company Number: BR-ABBVIE-18K-020-2596205-00

PATIENT
  Sex: Female
  Weight: 49 kg

DRUGS (7)
  1. LUMIGAN [Concomitant]
     Active Substance: BIMATOPROST
     Indication: OPTIC NERVE DISORDER
     Route: 050
     Dates: start: 2013
  2. VITAMIN D [Concomitant]
     Active Substance: CHOLECALCIFEROL
     Indication: PRODUCT USED FOR UNKNOWN INDICATION
     Route: 048
  3. HUMIRA [Suspect]
     Active Substance: ADALIMUMAB
     Indication: CROHN^S DISEASE
     Dosage: LOADING DOSE WEEK 0
     Route: 058
     Dates: start: 20171222, end: 20171222
  4. HUMIRA [Suspect]
     Active Substance: ADALIMUMAB
     Route: 058
     Dates: end: 20181214
  5. HUMIRA [Suspect]
     Active Substance: ADALIMUMAB
     Indication: ARTHRITIS
     Dosage: LOADING DOSE WEEK 02
     Route: 058
  6. PAROXETINE. [Concomitant]
     Active Substance: PAROXETINE
     Indication: DEPRESSION
     Route: 048
     Dates: start: 2013
  7. EVENING PRIMROSE OIL [Concomitant]
     Active Substance: EVENING PRIMROSE OIL\HERBALS
     Indication: MENOPAUSE
     Route: 048
     Dates: start: 2008

REACTIONS (2)
  - Breast mass [Recovering/Resolving]
  - Blood prolactin increased [Unknown]
